FAERS Safety Report 19219653 (Version 1)
Quarter: 2021Q2

REPORT INFORMATION
  Report Type: Other
  Country: DE (occurrence: DE)
  Receive Date: 20210506
  Receipt Date: 20210506
  Transmission Date: 20210717
  Serious: Yes (Death, Other)
  Sender: FDA-Public Use
  Company Number: DE-WES PHARMA INC-2110255

PATIENT
  Age: 25 Year
  Sex: Female
  Weight: 75 kg

DRUGS (7)
  1. ALPRAZOLAM. [Concomitant]
     Active Substance: ALPRAZOLAM
     Route: 065
  2. MODAFINIL. [Suspect]
     Active Substance: MODAFINIL
     Route: 065
  3. AMPHETAMINE SULFATE. [Suspect]
     Active Substance: AMPHETAMINE SULFATE
     Route: 065
  4. GABAPENTIN. [Concomitant]
     Active Substance: GABAPENTIN
     Route: 065
  5. METHYLPHENIDATE HYDROCHLORIDE. [Suspect]
     Active Substance: METHYLPHENIDATE HYDROCHLORIDE
     Indication: PRODUCT USED FOR UNKNOWN INDICATION
     Route: 065
  6. COCAINE HYDROCHLORIDE. [Suspect]
     Active Substance: COCAINE HYDROCHLORIDE
     Route: 065
  7. NITRAZEPAM [Concomitant]
     Active Substance: NITRAZEPAM
     Route: 065

REACTIONS (7)
  - Cardiac arrest [Fatal]
  - Toxicity to various agents [Unknown]
  - Drug abuse [Unknown]
  - Loss of consciousness [Unknown]
  - Fatigue [Fatal]
  - Respiratory disorder [Fatal]
  - Delirium [Fatal]
